FAERS Safety Report 23819342 (Version 1)
Quarter: 2024Q2

REPORT INFORMATION
  Report Type: Spontaneous
  Country: US (occurrence: US)
  Receive Date: 20240506
  Receipt Date: 20240506
  Transmission Date: 20240716
  Serious: No
  Sender: FDA-Public Use
  Company Number: US-AUROBINDO-AUR-APL-2024-004074

PATIENT
  Sex: Male

DRUGS (1)
  1. DEXTROMETHORPHAN HYDROBROMIDE\GUAIFENESIN [Suspect]
     Active Substance: DEXTROMETHORPHAN HYDROBROMIDE\GUAIFENESIN
     Indication: Product used for unknown indication
     Dosage: UNK, TABLETS, 14 COUNT
     Route: 065

REACTIONS (4)
  - Insomnia [Unknown]
  - Feeling jittery [Unknown]
  - Nervousness [Unknown]
  - Restlessness [Unknown]

NARRATIVE: CASE EVENT DATE: 20240121
